FAERS Safety Report 5020451-4 (Version None)
Quarter: 2006Q2

REPORT INFORMATION
  Report Type: 
  Country: None (occurrence: None)
  Receive Date: 20060601
  Receipt Date: 20060517
  Transmission Date: 20061013
  Serious: Yes (Other)
  Sender: FDA-Public Use
  Company Number: WAES 0605ESP00023

PATIENT
  Age: 36 Month
  Sex: Female

DRUGS (14)
  1. CANCIDAS [Suspect]
     Indication: PROPHYLAXIS
     Dosage: SEE IMAGE
     Route: 042
     Dates: start: 20041207, end: 20041228
  2. CANCIDAS [Suspect]
     Indication: PROPHYLAXIS
     Dosage: SEE IMAGE
     Route: 042
     Dates: start: 20041229, end: 20050120
  3. CANCIDAS [Suspect]
     Indication: PROPHYLAXIS
     Dosage: SEE IMAGE
     Route: 042
     Dates: start: 20050121, end: 20050121
  4. CANCIDAS [Suspect]
     Indication: PROPHYLAXIS
     Dosage: SEE IMAGE
     Route: 042
     Dates: start: 20050126, end: 20050311
  5. AMPHOTERICIN B (+) CHOLESTEROL (+) DISTE [Concomitant]
  6. BUSULFAN [Concomitant]
  7. CISPLATIN [Concomitant]
  8. CYCLOPHOSPHAMIDE [Concomitant]
  9. DOXORUBICIN HCL [Concomitant]
  10. ETOPOSIDE [Concomitant]
  11. MELPHALAN [Concomitant]
  12. TOPOTECAN [Concomitant]
  13. VINCRISTINE SULFATE [Concomitant]
  14. VORICONAZOLE [Concomitant]

REACTIONS (3)
  - ALANINE AMINOTRANSFERASE INCREASED [None]
  - ASPARTATE AMINOTRANSFERASE INCREASED [None]
  - BLOOD BILIRUBIN INCREASED [None]
